FAERS Safety Report 19413660 (Version 1)
Quarter: 2021Q2

REPORT INFORMATION
  Report Type: Spontaneous
  Country: CA (occurrence: CA)
  Receive Date: 20210615
  Receipt Date: 20210615
  Transmission Date: 20210717
  Serious: Yes (Other)
  Sender: FDA-Public Use
  Company Number: CA-AUROBINDO-AUR-APL-2021-024028

PATIENT
  Age: 75 Year
  Sex: Female

DRUGS (7)
  1. AMLODIPINE [Suspect]
     Active Substance: AMLODIPINE BESYLATE
     Indication: PRODUCT USED FOR UNKNOWN INDICATION
     Dosage: 10.0 MILLIGRAM, ONCE A DAY
     Route: 048
  2. KEYTRUDA [Suspect]
     Active Substance: PEMBROLIZUMAB
     Indication: PRODUCT USED FOR UNKNOWN INDICATION
     Dosage: UNK
     Route: 065
  3. LENVATINIB MESILATE [Suspect]
     Active Substance: LENVATINIB MESYLATE
     Indication: ENDOMETRIAL CANCER
     Dosage: 18.0 MILLIGRAM, ONCE A DAY
     Route: 048
  4. AMLODIPINE [Suspect]
     Active Substance: AMLODIPINE BESYLATE
     Indication: PRODUCT USED FOR UNKNOWN INDICATION
     Dosage: 5.0 MILLIGRAM
     Route: 048
  5. AMLODIPINE [Suspect]
     Active Substance: AMLODIPINE BESYLATE
     Indication: HYPERTENSION
  6. GABAPENTIN. [Suspect]
     Active Substance: GABAPENTIN
     Indication: NEUROPATHY PERIPHERAL
     Dosage: UNK UNK, ONCE A DAY
     Route: 048
  7. AMLODIPINE [Suspect]
     Active Substance: AMLODIPINE BESYLATE
     Indication: HYPERTENSION

REACTIONS (23)
  - Hypotension [Not Recovered/Not Resolved]
  - Balance disorder [Not Recovered/Not Resolved]
  - Malaise [Not Recovered/Not Resolved]
  - Somnolence [Not Recovered/Not Resolved]
  - Weight decreased [Not Recovered/Not Resolved]
  - Claustrophobia [Not Recovered/Not Resolved]
  - Renal cancer [Not Recovered/Not Resolved]
  - Asthenia [Not Recovered/Not Resolved]
  - Diarrhoea [Not Recovered/Not Resolved]
  - Renal impairment [Not Recovered/Not Resolved]
  - Rash papular [Not Recovered/Not Resolved]
  - Fatigue [Not Recovered/Not Resolved]
  - Feeling abnormal [Not Recovered/Not Resolved]
  - Joint swelling [Not Recovered/Not Resolved]
  - Neuropathy peripheral [Not Recovered/Not Resolved]
  - Peripheral swelling [Not Recovered/Not Resolved]
  - Blood pressure fluctuation [Not Recovered/Not Resolved]
  - Hypertension [Not Recovered/Not Resolved]
  - Ageusia [Not Recovered/Not Resolved]
  - Anxiety [Not Recovered/Not Resolved]
  - Blood urine present [Not Recovered/Not Resolved]
  - Eating disorder [Not Recovered/Not Resolved]
  - Skin tightness [Not Recovered/Not Resolved]
